FAERS Safety Report 5915068-0 (Version None)
Quarter: 2008Q4

REPORT INFORMATION
  Report Type: 
  Country: None (occurrence: None)
  Receive Date: 20081010
  Receipt Date: 20080929
  Transmission Date: 20090506
  Serious: Yes (Hospitalization)
  Sender: FDA-Public Use
  Company Number: A0750680A

PATIENT
  Age: 55 Year
  Sex: Female
  Weight: 83.1 kg

DRUGS (5)
  1. LAPATINIB [Suspect]
     Indication: BREAST CANCER
     Dosage: 1000MG PER DAY
     Route: 048
     Dates: start: 20080801
  2. HERCEPTIN [Suspect]
     Indication: BREAST CANCER
     Dosage: 2MGK WEEKLY
     Route: 042
     Dates: start: 20080801
  3. FEMARA [Concomitant]
     Dosage: 2.5MG PER DAY
     Route: 048
     Dates: start: 20080801
  4. ZOLADEX [Concomitant]
     Dosage: 3.6MG MONTHLY
     Route: 058
     Dates: start: 20080801
  5. OTHER MEDICATIONS [Concomitant]

REACTIONS (3)
  - COUGH [None]
  - DYSPNOEA [None]
  - PULMONARY EMBOLISM [None]
